FAERS Safety Report 17152718 (Version 1)
Quarter: 2019Q4

REPORT INFORMATION
  Report Type: Spontaneous
  Country: CH (occurrence: CH)
  Receive Date: 20191213
  Receipt Date: 20191213
  Transmission Date: 20200122
  Serious: Yes (Disabling, Other)
  Sender: FDA-Public Use
  Company Number: CH-GILEAD-2019-0437560

PATIENT
  Age: 46 Year
  Sex: Male
  Weight: 75 kg

DRUGS (3)
  1. EPCLUSA [Suspect]
     Active Substance: SOFOSBUVIR\VELPATASVIR
     Indication: CHRONIC HEPATITIS C
     Dosage: 1 DOSAGE FORM, QD
     Route: 048
     Dates: start: 20190328, end: 20190620
  2. DESCOVY [Suspect]
     Active Substance: EMTRICITABINE\TENOFOVIR ALAFENAMIDE FUMARATE
     Indication: HIV INFECTION
     Dosage: UNK
     Route: 048
     Dates: start: 201711
  3. TIVICAY [Concomitant]
     Active Substance: DOLUTEGRAVIR SODIUM
     Indication: HIV INFECTION
     Dosage: 50 MG
     Route: 048
     Dates: start: 201711

REACTIONS (3)
  - Fatigue [Recovered/Resolved]
  - Hepatitis C virus test positive [Unknown]
  - HIV viraemia [Unknown]

NARRATIVE: CASE EVENT DATE: 20190501
